FAERS Safety Report 9221465 (Version 1)
Quarter: 2013Q2

REPORT INFORMATION
  Report Type: Spontaneous
  Country: US (occurrence: US)
  Receive Date: 20130410
  Receipt Date: 20130410
  Transmission Date: 20140414
  Serious: No
  Sender: FDA-Public Use
  Company Number: US-009507513-1304USA003593

PATIENT
  Age: 59 Year
  Sex: Female

DRUGS (1)
  1. JANUMET XR [Suspect]
     Indication: DIABETES MELLITUS
     Dosage: 50/1000MG, QD
     Route: 048
     Dates: start: 20130305

REACTIONS (2)
  - Asthenia [Not Recovered/Not Resolved]
  - Nausea [Unknown]
